FAERS Safety Report 20859829 (Version 1)
Quarter: 2022Q2

REPORT INFORMATION
  Report Type: Spontaneous
  Country: US (occurrence: US)
  Receive Date: 20220523
  Receipt Date: 20220523
  Transmission Date: 20220720
  Serious: Yes (Other)
  Sender: FDA-Public Use
  Company Number: US-drreddys-LIT/USA/22/0150176

PATIENT
  Sex: Female

DRUGS (5)
  1. DICYCLOMINE HYDROCHLORIDE [Suspect]
     Active Substance: DICYCLOMINE HYDROCHLORIDE
     Indication: Post-acute COVID-19 syndrome
  2. PANTOPRAZOLE SODIUM [Suspect]
     Active Substance: PANTOPRAZOLE SODIUM
     Indication: Post-acute COVID-19 syndrome
  3. ONDANSETRON [Suspect]
     Active Substance: ONDANSETRON
     Indication: Post-acute COVID-19 syndrome
  4. PAROXETINE [Suspect]
     Active Substance: PAROXETINE
     Indication: Post-acute COVID-19 syndrome
  5. levothyroxine sodium [Synthroid] [Concomitant]
     Indication: Hypothyroidism

REACTIONS (1)
  - Drug ineffective [Unknown]
